FAERS Safety Report 7351711-X (Version None)
Quarter: 2011Q1

REPORT INFORMATION
  Report Type: 
  Country: None (occurrence: None)
  Receive Date: 20110315
  Receipt Date: 20110308
  Transmission Date: 20110831
  Serious: No
  Sender: FDA-Public Use
  Company Number: US-ROXANE LABORATORIES, INC.-2011-RO-00294RO

PATIENT
  Sex: Female
  Weight: 57 kg

DRUGS (2)
  1. CODEINE SUL TAB [Suspect]
  2. PROTONIX [Concomitant]

REACTIONS (1)
  - ABDOMINAL DISCOMFORT [None]
